FAERS Safety Report 5558108-3 (Version None)
Quarter: 2007Q4

REPORT INFORMATION
  Report Type: 
  Country: None (occurrence: None)
  Receive Date: 20071214
  Receipt Date: 20071207
  Transmission Date: 20080405
  Serious: Yes (Hospitalization)
  Sender: FDA-Public Use
  Company Number: DE-WYE-G00739707

PATIENT
  Sex: Female

DRUGS (3)
  1. TREVILOR RETARD [Suspect]
     Dosage: MAXIMAL 120 CAPSULES (OVERDOSE AMOUNT MAXIMAL 9000 MG)
     Route: 048
     Dates: start: 20071206, end: 20071206
  2. PIPAMPERONE [Suspect]
     Dosage: UNKNOWN OVERDOSE AMOUNT
     Route: 048
     Dates: start: 20071206, end: 20071206
  3. ETHANOL [Suspect]
     Dosage: UNKNOWN AMOUNT
     Route: 048
     Dates: start: 20071206, end: 20071206

REACTIONS (2)
  - ALCOHOL POISONING [None]
  - INTENTIONAL OVERDOSE [None]
